FAERS Safety Report 7324553-9 (Version None)
Quarter: 2011Q1

REPORT INFORMATION
  Report Type: 
  Country: None (occurrence: None)
  Receive Date: 20110301
  Receipt Date: 20110216
  Transmission Date: 20110831
  Serious: Yes (Other)
  Sender: FDA-Public Use
  Company Number: US-CELGENEUS-163-21880-10101960

PATIENT
  Sex: Male

DRUGS (10)
  1. REVLIMID [Suspect]
     Indication: MULTIPLE MYELOMA
     Dosage: 25 MILLIGRAM
     Route: 048
     Dates: start: 20091101, end: 20100101
  2. REVLIMID [Suspect]
     Dosage: 15 MILLIGRAM
     Route: 048
     Dates: start: 20100901, end: 20110101
  3. DEXILANT [Concomitant]
     Route: 065
  4. REVLIMID [Suspect]
     Dosage: 15MG-25MG
     Route: 048
     Dates: start: 20100501, end: 20100901
  5. ACYCLOVIR [Concomitant]
     Route: 065
  6. MAG-OX [Concomitant]
     Route: 065
  7. ZOMETA [Concomitant]
     Route: 065
  8. BACTRIM DS [Concomitant]
     Route: 065
  9. REVLIMID [Suspect]
     Dosage: 10 MILLIGRAM
     Route: 048
     Dates: start: 20110101
  10. IMODIUM [Concomitant]
     Route: 065

REACTIONS (4)
  - WHITE BLOOD CELL COUNT DECREASED [None]
  - PLATELET COUNT DECREASED [None]
  - HAEMORRHAGE [None]
  - CONTUSION [None]
